FAERS Safety Report 10048346 (Version 4)
Quarter: 2015Q2

REPORT INFORMATION
  Report Type: Report from Study
  Country: JP (occurrence: JP)
  Receive Date: 20140331
  Receipt Date: 20150626
  Transmission Date: 20150821
  Serious: Yes (Hospitalization)
  Sender: FDA-Public Use
  Company Number: JP-UCBSA-115884

PATIENT
  Age: 71 Year
  Sex: Female
  Weight: 48.5 kg

DRUGS (6)
  1. CERTOLIZUMAB PEGOL RA [Suspect]
     Active Substance: CERTOLIZUMAB PEGOL
     Indication: RHEUMATOID ARTHRITIS
     Dosage: 400 MG, EV 2 WEEKS(QOW), 200 MG SYRINGE
     Route: 058
     Dates: start: 20130326, end: 20130423
  2. RHEUMATREX [Suspect]
     Active Substance: METHOTREXATE SODIUM
     Indication: RHEUMATOID ARTHRITIS
     Dosage: UNKNOWN DOSE
     Route: 048
     Dates: end: 201403
  3. PREDNISOLONE. [Concomitant]
     Active Substance: PREDNISOLONE
     Dosage: DAILY DOSE: 2 MG
     Route: 048
     Dates: end: 20131021
  4. CERTOLIZUMAB PEGOL RA [Suspect]
     Active Substance: CERTOLIZUMAB PEGOL
     Dosage: 200 MG, EV 2 WEEKS(QOW), 200 MG SYRINGE
     Route: 058
     Dates: start: 20130507, end: 20140304
  5. PREDNISOLONE. [Concomitant]
     Active Substance: PREDNISOLONE
     Dosage: DAILY DOSE: 1 MG
     Route: 048
     Dates: start: 20131022, end: 20131202
  6. PREDNISOLONE. [Concomitant]
     Active Substance: PREDNISOLONE
     Dosage: DAILY DOSE: 0.5 MG
     Route: 048
     Dates: start: 20131203

REACTIONS (1)
  - Pneumocystis jirovecii pneumonia [Recovering/Resolving]

NARRATIVE: CASE EVENT DATE: 20140306
